FAERS Safety Report 15384965 (Version 2)
Quarter: 2018Q3

REPORT INFORMATION
  Report Type: Spontaneous
  Country: US (occurrence: US)
  Receive Date: 20180914
  Receipt Date: 20180919
  Transmission Date: 20181010
  Serious: No
  Sender: FDA-Public Use
  Company Number: US-PFIZER INC-2018369177

PATIENT
  Age: 26 Year
  Sex: Male

DRUGS (1)
  1. SOMAVERT [Suspect]
     Active Substance: PEGVISOMANT
     Dosage: 10 MG, DAILY
     Route: 058
     Dates: start: 20180718, end: 2018

REACTIONS (5)
  - Chills [Unknown]
  - Insulin-like growth factor increased [Unknown]
  - Dizziness [Unknown]
  - Headache [Unknown]
  - Nervousness [Unknown]

NARRATIVE: CASE EVENT DATE: 2018
